FAERS Safety Report 12928488 (Version 2)
Quarter: 2017Q1

REPORT INFORMATION
  Report Type: Spontaneous
  Country: FI (occurrence: FI)
  Receive Date: 20161110
  Receipt Date: 20170113
  Transmission Date: 20170428
  Serious: Yes (Other)
  Sender: FDA-Public Use
  Company Number: FI-SUN PHARMACEUTICAL INDUSTRIES LTD-2016RR-127432

PATIENT
  Age: 68 Year
  Sex: Male

DRUGS (1)
  1. BICALUTAMIDE. [Suspect]
     Active Substance: BICALUTAMIDE
     Indication: PROSTATE CANCER
     Dosage: 150 MG, QD
     Route: 065
     Dates: start: 200608

REACTIONS (2)
  - Phyllodes tumour [Recovered/Resolved]
  - Gynaecomastia [Recovered/Resolved]
